FAERS Safety Report 7249203-1 (Version None)
Quarter: 2011Q1

REPORT INFORMATION
  Report Type: 
  Country: None (occurrence: None)
  Receive Date: 20110128
  Receipt Date: 20101203
  Transmission Date: 20110831
  Serious: Yes (Death, Other)
  Sender: FDA-Public Use
  Company Number: US-BAYER-2010-001142

PATIENT
  Age: 60 Year
  Sex: Female

DRUGS (3)
  1. NAPROXEN SODIUM [Suspect]
     Dosage: 40 DF
     Route: 048
  2. AMLODIPINE [Suspect]
     Route: 048
  3. METOPROLOL [Suspect]
     Route: 048

REACTIONS (2)
  - HYPOTENSION [None]
  - BLOOD PH DECREASED [None]
